FAERS Safety Report 7905147-0 (Version None)
Quarter: 2011Q4

REPORT INFORMATION
  Report Type: 
  Country: None (occurrence: None)
  Receive Date: 20111109
  Receipt Date: 20111108
  Transmission Date: 20120403
  Serious: Yes (Life-Threatening)
  Sender: FDA-Public Use
  Company Number: PL-BAYER-2011-108219

PATIENT
  Age: 51 Year
  Sex: Male

DRUGS (1)
  1. ULTRAVIST 150 [Suspect]
     Indication: IMAGING PROCEDURE
     Dosage: UNK
     Route: 042
     Dates: start: 20111004, end: 20111004

REACTIONS (1)
  - VOMITING [None]
